FAERS Safety Report 7245271-1 (Version None)
Quarter: 2011Q1

REPORT INFORMATION
  Report Type: 
  Country: None (occurrence: None)
  Receive Date: 20110126
  Receipt Date: 20110111
  Transmission Date: 20110831
  Serious: Yes (Hospitalization, Congenital Anomaly, Other)
  Sender: FDA-Public Use
  Company Number: BE-PFIZER INC-BE-WYE-G06217910

PATIENT
  Sex: Female

DRUGS (4)
  1. SERLAIN [Suspect]
     Dosage: 50 MG, 1X/DAY
     Route: 048
     Dates: start: 20100419
  2. CLAMOXYL DISPERS [Concomitant]
     Dosage: UNK
     Route: 065
     Dates: start: 20100401
  3. LORAZEPAM [Suspect]
     Dosage: 1-2 MG PER DAY
     Route: 064
     Dates: start: 20100503
  4. INFLUENZA VIRUS VACCINE [Concomitant]
     Route: 065

REACTIONS (6)
  - CONGENITAL NEUROPATHY [None]
  - DRUG EXPOSURE DURING PREGNANCY [None]
  - PREMATURE BABY [None]
  - HYPOTONIA NEONATAL [None]
  - MUSCLE DISORDER [None]
  - TALIPES [None]
